FAERS Safety Report 7071715-4 (Version None)
Quarter: 2010Q4

REPORT INFORMATION
  Report Type: 
  Country: None (occurrence: None)
  Receive Date: 20101029
  Receipt Date: 20091012
  Transmission Date: 20110411
  Serious: No
  Sender: FDA-Public Use
  Company Number: A0811415A

PATIENT
  Age: 78 Year
  Sex: Female

DRUGS (7)
  1. ADVAIR DISKUS 100/50 [Suspect]
     Indication: ASTHMA
     Dosage: 1PUFF TWICE PER DAY
     Route: 055
  2. FOSAMAX [Concomitant]
  3. ALBUTEROL [Concomitant]
  4. ACIPHEX [Concomitant]
  5. FLUTICASONE NASAL [Concomitant]
  6. SINGULAIR [Concomitant]
  7. BLOOD PRESSURE MEDICATION [Concomitant]

REACTIONS (3)
  - PRURITUS [None]
  - SKIN EXFOLIATION [None]
  - SWELLING FACE [None]
